FAERS Safety Report 4522616-4 (Version None)
Quarter: 2004Q4

REPORT INFORMATION
  Report Type: 
  Country: None (occurrence: None)
  Receive Date: 20041207
  Receipt Date: 20041123
  Transmission Date: 20050328
  Serious: Yes (Life-Threatening)
  Sender: FDA-Public Use
  Company Number: EWC041141575

PATIENT
  Age: 35 Year
  Sex: Female

DRUGS (5)
  1. HUMATROPE [Suspect]
     Indication: GROWTH HORMONE DEFICIENCY
     Dosage: 0.2 MG
     Dates: start: 19970101, end: 20041106
  2. OMEPRAZOLE (OMEPRAZOLE RATIOPHARM) [Concomitant]
  3. FLIXONASE (FLUTICASONE PROPIONATE) [Concomitant]
  4. VENTOLIN [Concomitant]
  5. PARACETAMOL [Concomitant]

REACTIONS (2)
  - MENINGIOMA [None]
  - SPINAL CORD COMPRESSION [None]
